FAERS Safety Report 26137362 (Version 1)
Quarter: 2025Q4

REPORT INFORMATION
  Report Type: Spontaneous
  Country: US (occurrence: None)
  Receive Date: 20251207
  Receipt Date: 20251207
  Transmission Date: 20260118
  Serious: Yes (Life-Threatening)
  Sender: FDA-CTU
  Company Number: None

PATIENT
  Age: 50 Year
  Sex: Female
  Weight: 61.69 kg

DRUGS (3)
  1. MIRENA [Suspect]
     Active Substance: LEVONORGESTREL
     Indication: Heavy menstrual bleeding
  2. VITAMINS [Concomitant]
     Active Substance: VITAMINS
  3. vitamin d 2000IU [Concomitant]

REACTIONS (9)
  - Restlessness [None]
  - Anxiety [None]
  - Insomnia [None]
  - Panic attack [None]
  - Depression [None]
  - Morbid thoughts [None]
  - Sympathomimetic effect [None]
  - Headache [None]
  - Irritability [None]

NARRATIVE: CASE EVENT DATE: 20250930
